FAERS Safety Report 24751863 (Version 1)
Quarter: 2024Q4

REPORT INFORMATION
  Report Type: Spontaneous
  Country: US (occurrence: US)
  Receive Date: 20241219
  Receipt Date: 20241219
  Transmission Date: 20250115
  Serious: No
  Sender: PACIRA
  Company Number: US-ORG100016242-2024000522

PATIENT

DRUGS (1)
  1. EXPAREL [Suspect]
     Active Substance: BUPIVACAINE
     Indication: Thoracotomy
     Dosage: NOT PROVIDED

REACTIONS (2)
  - Therapeutic product effect variable [Unknown]
  - Procedural pain [Not Recovered/Not Resolved]
